FAERS Safety Report 8569875-9 (Version None)
Quarter: 2012Q3

REPORT INFORMATION
  Report Type: 
  Country: None (occurrence: None)
  Receive Date: 20120803
  Receipt Date: 20120223
  Transmission Date: 20120928
  Serious: No
  Sender: FDA-Public Use
  Company Number: US-ABBOTT-12P-163-0907821-00

PATIENT
  Sex: Female
  Weight: 104.42 kg

DRUGS (8)
  1. ZOLOFT [Concomitant]
     Indication: PRODUCT USED FOR UNKNOWN INDICATION
  2. LIPITOR [Concomitant]
     Indication: PRODUCT USED FOR UNKNOWN INDICATION
  3. PRACLOMEX [Concomitant]
     Indication: MIGRAINE
  4. METFORMIN HYDROCHLORIDE [Concomitant]
     Indication: POLYCYSTIC OVARIES
  5. LOSARTAN/HYDROCHLOORTHIAZIDE [Concomitant]
     Indication: HYPERTENSION
     Dosage: 50/12.5
  6. NIASPAN [Suspect]
     Indication: PRODUCT USED FOR UNKNOWN INDICATION
     Route: 048
     Dates: start: 20120130
  7. VITAMIN D [Concomitant]
     Indication: PRODUCT USED FOR UNKNOWN INDICATION
  8. ASPIRIN [Concomitant]
     Indication: PRODUCT USED FOR UNKNOWN INDICATION

REACTIONS (5)
  - FLUSHING [None]
  - PARAESTHESIA [None]
  - ERYTHEMA [None]
  - SKIN BURNING SENSATION [None]
  - PAIN [None]
